FAERS Safety Report 6222676-9 (Version None)
Quarter: 2009Q2

REPORT INFORMATION
  Report Type: 
  Country: None (occurrence: None)
  Receive Date: 20090609
  Receipt Date: 20090609
  Transmission Date: 20091009
  Serious: Yes (Other)
  Sender: FDA-Public Use
  Company Number: None

PATIENT
  Sex: Female
  Weight: 54.4316 kg

DRUGS (1)
  1. ANASTROZOLE [Suspect]
     Indication: BREAST CANCER
     Dosage: 1MG
     Dates: start: 20080401, end: 20090601

REACTIONS (2)
  - BONE MARROW DISORDER [None]
  - LEUKOPENIA [None]
